FAERS Safety Report 5514936-1 (Version None)
Quarter: 2007Q4

REPORT INFORMATION
  Report Type: 
  Country: None (occurrence: None)
  Receive Date: 20071113
  Receipt Date: 20061012
  Transmission Date: 20080405
  Serious: No
  Sender: FDA-Public Use
  Company Number: A0623408A

PATIENT
  Age: 53 Year
  Sex: Male

DRUGS (7)
  1. COREG [Suspect]
     Dosage: 25MG TWICE PER DAY
     Route: 048
     Dates: start: 20060101
  2. POTASSIUM CHLORIDE [Concomitant]
  3. MAGNESIUM SULFATE [Concomitant]
  4. FUROSEMIDE [Concomitant]
  5. ENALAPRIL MALEATE [Concomitant]
  6. NEXIUM [Concomitant]
  7. ASPIRIN [Concomitant]

REACTIONS (5)
  - BLISTER [None]
  - PRURITUS [None]
  - RASH [None]
  - VISION BLURRED [None]
  - WEIGHT INCREASED [None]
